FAERS Safety Report 5374395-9 (Version None)
Quarter: 2007Q2

REPORT INFORMATION
  Report Type: 
  Country: None (occurrence: None)
  Receive Date: 20070629
  Receipt Date: 20070205
  Transmission Date: 20071010
  Serious: No
  Sender: FDA-Public Use
  Company Number: A0636768A

PATIENT
  Age: 71 Year
  Sex: Female

DRUGS (1)
  1. ALBUTEROL [Suspect]

REACTIONS (2)
  - HYPERSENSITIVITY [None]
  - PLEURISY [None]
